FAERS Safety Report 8226936-1 (Version None)
Quarter: 2012Q1

REPORT INFORMATION
  Report Type: 
  Country: None (occurrence: None)
  Receive Date: 20120322
  Receipt Date: 20120315
  Transmission Date: 20120608
  Serious: Yes (Hospitalization)
  Sender: FDA-Public Use
  Company Number: US-BAYER-2011-114250

PATIENT
  Age: 28 Year
  Sex: Female
  Weight: 164.17 kg

DRUGS (16)
  1. LAMICTAL [Concomitant]
     Dosage: 100 MG, UNK
     Route: 048
  2. ABILIFY [Concomitant]
     Dosage: 40 MG, EVERY MORNING
     Route: 048
  3. FENTANYL [Concomitant]
     Dosage: 25 ?G, EVERY THREE DAYS
     Route: 062
  4. TRAMADOL HCL [Concomitant]
     Dosage: 50 MG, UNK
     Route: 048
  5. LASIX [Concomitant]
     Dosage: 10 MG, EVERY MORNING
     Route: 048
  6. PROMETHAZINE [Concomitant]
     Dosage: 25 MG, UNK
     Route: 048
     Dates: start: 20090314
  7. YAZ [Suspect]
     Dosage: UNK
     Route: 048
     Dates: start: 20090301
  8. AZITHROMYCIN [Concomitant]
     Dosage: 250 MG, UNK
     Route: 048
     Dates: start: 20090314
  9. YASMIN [Suspect]
     Dosage: UNK
     Route: 048
     Dates: start: 20090301
  10. OXYBUTYNIN [Concomitant]
     Dosage: 5 MG, UNK
     Route: 048
  11. CIPROFLOXACIN [Concomitant]
     Dosage: 500 MG, UNK
     Route: 048
     Dates: start: 20090501
  12. PHENERGAN EXPECTORANT W/ CODEINE [Concomitant]
     Dosage: UNK, PRN
     Route: 048
     Dates: start: 20090520
  13. DOXEPIN HCL [Concomitant]
     Dosage: 100 MG, EVERY MORNING
     Route: 048
  14. EFFEXOR XR [Concomitant]
     Dosage: 150 MG, UNK
     Route: 048
  15. NEURONTIN [Concomitant]
     Dosage: 300 MG, TID
     Route: 048
  16. METHADONE HCL [Concomitant]
     Dosage: 5 MG, QID
     Route: 048

REACTIONS (3)
  - PAIN [None]
  - DEEP VEIN THROMBOSIS [None]
  - INJURY [None]
